FAERS Safety Report 6618870-5 (Version None)
Quarter: 2010Q1

REPORT INFORMATION
  Report Type: 
  Country: None (occurrence: None)
  Receive Date: 20100308
  Receipt Date: 20100222
  Transmission Date: 20100710
  Serious: Yes (Other)
  Sender: FDA-Public Use
  Company Number: GB-MYLANLABS-2010S1002879

PATIENT
  Age: 5 Year
  Sex: Female
  Weight: 15 kg

DRUGS (1)
  1. NADOLOL [Suspect]
     Indication: LONG QT SYNDROME
     Route: 065

REACTIONS (2)
  - GRAND MAL CONVULSION [None]
  - HYPOGLYCAEMIC UNCONSCIOUSNESS [None]
